FAERS Safety Report 11840247 (Version 1)
Quarter: 2015Q4

REPORT INFORMATION
  Report Type: Spontaneous
  Country: US (occurrence: US)
  Receive Date: 20151216
  Receipt Date: 20151216
  Transmission Date: 20160305
  Serious: No
  Sender: FDA-Public Use
  Company Number: US-PERRIGO-15US009654

PATIENT
  Sex: Female

DRUGS (1)
  1. TROSPIUM CHLORIDE 60 MG 1G4 [Suspect]
     Active Substance: TROSPIUM CHLORIDE
     Indication: PRODUCT USED FOR UNKNOWN INDICATION
     Dosage: UNK
     Route: 048
     Dates: start: 20150910

REACTIONS (2)
  - Drug ineffective [Unknown]
  - Product quality issue [None]

NARRATIVE: CASE EVENT DATE: 20150910
